FAERS Safety Report 24834639 (Version 1)
Quarter: 2025Q1

REPORT INFORMATION
  Report Type: Spontaneous
  Country: US (occurrence: US)
  Receive Date: 20250113
  Receipt Date: 20250113
  Transmission Date: 20250409
  Serious: Yes (Other)
  Sender: AMGEN
  Company Number: US-AMGEN-USASP2025005547

PATIENT
  Age: 59 Year
  Sex: Female

DRUGS (3)
  1. BLINCYTO [Suspect]
     Active Substance: BLINATUMOMAB
     Indication: Acute lymphocytic leukaemia recurrent
     Route: 040
     Dates: start: 2024, end: 2024
  2. BLINCYTO [Suspect]
     Active Substance: BLINATUMOMAB
     Indication: Philadelphia chromosome positive
     Route: 040
  3. PONATINIB [Concomitant]
     Active Substance: PONATINIB

REACTIONS (2)
  - Neurotoxicity [Recovering/Resolving]
  - Somnolence [Unknown]
